FAERS Safety Report 22266580 (Version 1)
Quarter: 2023Q2

REPORT INFORMATION
  Report Type: Spontaneous
  Country: AR (occurrence: AR)
  Receive Date: 20230428
  Receipt Date: 20230428
  Transmission Date: 20230721
  Serious: No
  Sender: FDA-Public Use
  Company Number: AR-PFIZER INC-PV202300074353

PATIENT
  Age: 14 Year
  Sex: Female

DRUGS (1)
  1. GENOTROPIN [Suspect]
     Active Substance: SOMATROPIN
     Indication: Growth hormone deficiency
     Dosage: 1.5 TO 2MG, 7 TIMES PER WEEK
     Dates: start: 20181104

REACTIONS (2)
  - Poor quality device used [Unknown]
  - Device failure [Unknown]

NARRATIVE: CASE EVENT DATE: 20230101
